FAERS Safety Report 7263797-1 (Version None)
Quarter: 2011Q1

REPORT INFORMATION
  Report Type: 
  Country: None (occurrence: None)
  Receive Date: 20110130
  Receipt Date: 20101029
  Transmission Date: 20110831
  Serious: No
  Sender: FDA-Public Use
  Company Number: US-ABBOTT-10P-163-0682364-00

PATIENT
  Age: 56 Year
  Sex: Female

DRUGS (7)
  1. METFORMIN [Concomitant]
     Indication: PRODUCT USED FOR UNKNOWN INDICATION
  2. NEXIUM [Concomitant]
     Indication: PRODUCT USED FOR UNKNOWN INDICATION
     Dosage: TWO 40MG PER DAY
  3. HUMIRA [Suspect]
     Indication: PSORIASIS
  4. HYDROCODONE [Concomitant]
     Indication: PAIN
     Dosage: 7.5/500 AS REQUIRED
  5. DIOVAN HCT [Concomitant]
     Indication: PRODUCT USED FOR UNKNOWN INDICATION
     Dosage: 160/12.5MG AT ONE PER DAY
  6. NORVASC [Concomitant]
     Indication: PRODUCT USED FOR UNKNOWN INDICATION
  7. TOPROL-XL [Concomitant]
     Indication: PRODUCT USED FOR UNKNOWN INDICATION

REACTIONS (4)
  - ERYTHEMA [None]
  - SKIN IRRITATION [None]
  - SKIN EXFOLIATION [None]
  - DRY SKIN [None]
